FAERS Safety Report 25974731 (Version 1)
Quarter: 2025Q4

REPORT INFORMATION
  Report Type: Spontaneous
  Country: EU (occurrence: EU)
  Receive Date: 20251029
  Receipt Date: 20251029
  Transmission Date: 20260118
  Serious: Yes (Other)
  Sender: CHEPLAPHARM
  Company Number: None

PATIENT
  Age: 38 Year
  Sex: Male
  Weight: 90 kg

DRUGS (3)
  1. OLANZAPINE [Suspect]
     Active Substance: OLANZAPINE
     Indication: Suicidal ideation
     Dosage: UNK
     Route: 048
     Dates: start: 20250816, end: 20250816
  2. MIRTAZAPINE [Suspect]
     Active Substance: MIRTAZAPINE
     Indication: Suicidal ideation
     Dosage: UNK
     Route: 048
     Dates: start: 20250816, end: 20250816
  3. HALOPERIDOL [Suspect]
     Active Substance: HALOPERIDOL
     Indication: Suicidal ideation
     Dosage: UNK
     Route: 048
     Dates: start: 20250816, end: 20250816

REACTIONS (4)
  - Suicide attempt [Unknown]
  - Somnolence [Unknown]
  - Aggression [Unknown]
  - Patient uncooperative [Unknown]

NARRATIVE: CASE EVENT DATE: 20250816
